FAERS Safety Report 16110125 (Version 1)
Quarter: 2019Q1

REPORT INFORMATION
  Report Type: Report from Study
  Country: None (occurrence: GB)
  Receive Date: 20190325
  Receipt Date: 20190325
  Transmission Date: 20190418
  Serious: Yes (Hospitalization)
  Sender: FDA-Public Use
  Company Number: GB-ABBVIE-19K-167-2666992-00

PATIENT
  Age: 35 Year
  Sex: Female
  Weight: 68 kg

DRUGS (2)
  1. HUMIRA [Suspect]
     Active Substance: ADALIMUMAB
     Indication: CROHN^S DISEASE
     Route: 058
     Dates: start: 20181210, end: 2019
  2. HUMIRA [Suspect]
     Active Substance: ADALIMUMAB
     Route: 058
     Dates: start: 20190228

REACTIONS (8)
  - Frequent bowel movements [Unknown]
  - Dyspepsia [Unknown]
  - Drug ineffective [Unknown]
  - Crohn^s disease [Recovered/Resolved]
  - Diarrhoea [Recovered/Resolved]
  - Abdominal pain upper [Recovered/Resolved]
  - Dehydration [Recovered/Resolved]
  - Gastrointestinal pain [Unknown]

NARRATIVE: CASE EVENT DATE: 2019
